FAERS Safety Report 19436165 (Version 1)
Quarter: 2021Q2

REPORT INFORMATION
  Report Type: Spontaneous
  Country: US (occurrence: US)
  Receive Date: 20210618
  Receipt Date: 20210618
  Transmission Date: 20210717
  Serious: Yes (Hospitalization, Other)
  Sender: FDA-Public Use
  Company Number: US-SUN PHARMACEUTICAL INDUSTRIES LTD-2021R1-300416

PATIENT
  Sex: Female

DRUGS (6)
  1. LORAZEPAM. [Suspect]
     Active Substance: LORAZEPAM
     Dosage: 1 MILLIGRAM, TID
     Route: 065
  2. LORAZEPAM. [Suspect]
     Active Substance: LORAZEPAM
     Indication: CATATONIA
     Dosage: 1 MILLIGRAM, DAILY
     Route: 064
  3. MEMANTINE. [Suspect]
     Active Substance: MEMANTINE
     Indication: CATATONIA
     Dosage: 5 MILLIGRAM, DAILY
     Route: 064
  4. MEMANTINE. [Suspect]
     Active Substance: MEMANTINE
     Dosage: UNK (10 MG IN MORNING; 5 MG AT NIGHT)
     Route: 064
  5. MEMANTINE. [Suspect]
     Active Substance: MEMANTINE
     Dosage: 10 MILLIGRAM, BID
     Route: 064
  6. RISPERIDONE. [Suspect]
     Active Substance: RISPERIDONE
     Indication: SCHIZOPHRENIA
     Dosage: UNK (1 MILLIGRAM IN MORNING; MG AT BEDTIME)
     Route: 064

REACTIONS (6)
  - Retinopathy of prematurity [Recovering/Resolving]
  - Apnoea [Recovered/Resolved]
  - Foetal exposure during pregnancy [Unknown]
  - Anaemia neonatal [Recovering/Resolving]
  - Premature baby [Unknown]
  - Neonatal respiratory distress syndrome [Unknown]
